FAERS Safety Report 20935810 (Version 2)
Quarter: 2022Q2

REPORT INFORMATION
  Report Type: Spontaneous
  Country: HK (occurrence: HK)
  Receive Date: 20220609
  Receipt Date: 20220624
  Transmission Date: 20220721
  Serious: Yes (Other)
  Sender: FDA-Public Use
  Company Number: HK-TEVA-2022-HK-2043413

PATIENT
  Age: 44 Year
  Sex: Male

DRUGS (2)
  1. SILDENAFIL [Suspect]
     Active Substance: SILDENAFIL
     Indication: Drug therapy
     Dosage: AN UNSPECIFIED CAPSULE ADULTERATED WITH SILDENAFIL
     Route: 065
  2. GLYBURIDE [Suspect]
     Active Substance: GLYBURIDE
     Indication: Drug therapy
     Dosage: AN UNSPECIFIED CAPSULE ADULTERATED WITH GLIBENCLAMIDE
     Route: 065

REACTIONS (2)
  - Hypoglycaemia [Unknown]
  - Toxicity to various agents [Unknown]
